FAERS Safety Report 16316336 (Version 3)
Quarter: 2020Q1

REPORT INFORMATION
  Report Type: Spontaneous
  Country: US (occurrence: US)
  Receive Date: 20190515
  Receipt Date: 20200120
  Transmission Date: 20200409
  Serious: Yes (Hospitalization, Other)
  Sender: FDA-Public Use
  Company Number: US-GLAXOSMITHKLINE-US2019GSK083786

PATIENT
  Sex: Male

DRUGS (3)
  1. PREVACID [Suspect]
     Active Substance: LANSOPRAZOLE
     Indication: PRODUCT USED FOR UNKNOWN INDICATION
     Dosage: 30 MG, QD
     Route: 048
  2. PREVACID [Suspect]
     Active Substance: LANSOPRAZOLE
     Indication: GASTROOESOPHAGEAL REFLUX DISEASE
     Dosage: 30 MG, BID
     Route: 065
  3. PREVACID [Suspect]
     Active Substance: LANSOPRAZOLE
     Indication: GASTROOESOPHAGEAL REFLUX DISEASE
     Dosage: UNK UNK, BID
     Route: 065

REACTIONS (43)
  - Ureteric obstruction [Unknown]
  - Renal atrophy [Unknown]
  - End stage renal disease [Not Recovered/Not Resolved]
  - Dialysis [Unknown]
  - Hydroureter [Unknown]
  - Hydronephrosis [Unknown]
  - Acute kidney injury [Unknown]
  - Renal impairment [Unknown]
  - Urinary tract obstruction [Unknown]
  - Nephrolithiasis [Recovered/Resolved]
  - Pyelonephritis chronic [Unknown]
  - Urinary tract candidiasis [Unknown]
  - Obstructive nephropathy [Unknown]
  - Lower urinary tract symptoms [Unknown]
  - Renal failure [Unknown]
  - Urethral stenosis [Unknown]
  - Haematuria [Unknown]
  - Nephropathy [Unknown]
  - Renal injury [Unknown]
  - Chronic kidney disease [Unknown]
  - Calculus urinary [Unknown]
  - Kidney enlargement [Unknown]
  - Pyelonephritis [Unknown]
  - Kidney infection [Unknown]
  - Ureteric stenosis [Unknown]
  - Kidney fibrosis [Unknown]
  - Rebound effect [Unknown]
  - Hyperchlorhydria [Unknown]
  - Micturition urgency [Unknown]
  - Polyuria [Unknown]
  - Kidney small [Unknown]
  - Funguria [Unknown]
  - Nephrostomy [Unknown]
  - Oliguria [Unknown]
  - Haemodialysis [Unknown]
  - Single functional kidney [Unknown]
  - Azotaemia [Unknown]
  - Anuria [Unknown]
  - Dysuria [Unknown]
  - Pollakiuria [Unknown]
  - Renal stone removal [Unknown]
  - Pyelonephritis fungal [Unknown]
  - Nephrectomy [Unknown]
